FAERS Safety Report 24538531 (Version 1)
Quarter: 2024Q4

REPORT INFORMATION
  Report Type: Report from Study
  Country: EG (occurrence: EG)
  Receive Date: 20241023
  Receipt Date: 20241023
  Transmission Date: 20250115
  Serious: Yes (Death, Hospitalization, Other)
  Sender: SANDOZ
  Company Number: EG-SANDOZ-SDZ2024EG089034

PATIENT
  Sex: Female

DRUGS (1)
  1. HYRIMOZ [Suspect]
     Active Substance: ADALIMUMAB-ADAZ
     Indication: Ankylosing spondylitis
     Dosage: 40 MG EVERY OTHER WEEK(PATIENT ONLY PURCHASED ONE PACK OF HYRIMOZ SINCE START DATE).
     Route: 058
     Dates: start: 20240710

REACTIONS (1)
  - Neoplasm malignant [Fatal]

NARRATIVE: CASE EVENT DATE: 20240101
